FAERS Safety Report 9417246 (Version 1)
Quarter: 2013Q3

REPORT INFORMATION
  Report Type: Spontaneous
  Country: US (occurrence: US)
  Receive Date: 20130724
  Receipt Date: 20130724
  Transmission Date: 20140515
  Serious: No
  Sender: FDA-Public Use
  Company Number: US-BAUSCH-BL-2013-002076

PATIENT
  Age: 69 Year
  Sex: Female
  Weight: 90.8 kg

DRUGS (1)
  1. OPCON-A [Suspect]
     Indication: MULTIPLE ALLERGIES
     Dosage: OPHTHALMIC; ONCE DAILY
     Route: 047
     Dates: start: 20130328, end: 20130328

REACTIONS (3)
  - Ocular hyperaemia [Recovered/Resolved]
  - Mydriasis [Recovered/Resolved]
  - Eye irritation [Recovered/Resolved]
